FAERS Safety Report 22161812 (Version 1)
Quarter: 2023Q1

REPORT INFORMATION
  Report Type: Report from Study
  Country: GB (occurrence: GB)
  Receive Date: 20230331
  Receipt Date: 20230331
  Transmission Date: 20230417
  Serious: Yes (Hospitalization)
  Sender: FDA-Public Use
  Company Number: GB-TEVA-2023-GB-2871597

PATIENT
  Sex: Male

DRUGS (1)
  1. OCTREOTIDE [Suspect]
     Active Substance: OCTREOTIDE
     Indication: Product used for unknown indication
     Route: 065

REACTIONS (7)
  - Poor peripheral circulation [Unknown]
  - Dyspnoea [Unknown]
  - Feeding disorder [Unknown]
  - Dizziness [Unknown]
  - Asthenia [Unknown]
  - Dehydration [Unknown]
  - Blood pressure decreased [Unknown]
